FAERS Safety Report 6242511-2 (Version None)
Quarter: 2009Q2

REPORT INFORMATION
  Report Type: 
  Country: None (occurrence: None)
  Receive Date: 20090624
  Receipt Date: 20090617
  Transmission Date: 20091009
  Serious: Yes (Other)
  Sender: FDA-Public Use
  Company Number: US-ASTRAZENECA-2009UW15466

PATIENT
  Age: 45 Year
  Sex: Male

DRUGS (3)
  1. NEXIUM [Suspect]
     Route: 048
  2. PLAVIX [Concomitant]
  3. UNSPECIFIED STATIN [Concomitant]

REACTIONS (2)
  - LABORATORY TEST ABNORMAL [None]
  - STENT PLACEMENT [None]
